FAERS Safety Report 6390694-6 (Version None)
Quarter: 2009Q4

REPORT INFORMATION
  Report Type: 
  Country: None (occurrence: None)
  Receive Date: 20091006
  Receipt Date: 20090929
  Transmission Date: 20100525
  Serious: Yes (Death, Hospitalization)
  Sender: FDA-Public Use
  Company Number: US-GENENTECH-290468

PATIENT
  Sex: Female
  Weight: 54.875 kg

DRUGS (8)
  1. BEVACIZUMAB [Suspect]
     Indication: GLIOBLASTOMA MULTIFORME
     Dosage: 567 MG, Q2W
     Route: 042
     Dates: start: 20090609, end: 20090901
  2. EVEROLIMUS [Suspect]
     Indication: GLIOBLASTOMA MULTIFORME
     Dosage: 10 MG, QD
     Route: 048
     Dates: start: 20090817, end: 20090914
  3. AMBIEN [Concomitant]
     Indication: DRUG USE FOR UNKNOWN INDICATION
     Dosage: 5 MG, UNK
     Route: 048
     Dates: start: 20090605, end: 20090919
  4. ANUSOL (CANADA) [Concomitant]
     Indication: DRUG USE FOR UNKNOWN INDICATION
     Dosage: UNK
     Route: 003
     Dates: start: 20090911, end: 20090919
  5. DYAZIDE [Concomitant]
     Indication: DRUG USE FOR UNKNOWN INDICATION
     Dosage: UNK
     Route: 048
     Dates: start: 20090812, end: 20090919
  6. FLEXERIL [Concomitant]
     Indication: DRUG USE FOR UNKNOWN INDICATION
     Dosage: 10 MG, UNK
     Route: 048
     Dates: start: 20090604, end: 20090919
  7. PERCOCET [Concomitant]
     Indication: DRUG USE FOR UNKNOWN INDICATION
     Dosage: UNK
     Route: 048
     Dates: start: 20090904, end: 20090919
  8. VALTREX [Concomitant]
     Indication: DRUG USE FOR UNKNOWN INDICATION
     Dosage: 500 MG, UNK
     Route: 048
     Dates: start: 20090609

REACTIONS (1)
  - PNEUMONIA [None]
